FAERS Safety Report 13988915 (Version 1)
Quarter: 2017Q3

REPORT INFORMATION
  Report Type: Other
  Country: GB (occurrence: KR)
  Receive Date: 20170919
  Receipt Date: 20170919
  Transmission Date: 20171128
  Serious: Yes (Hospitalization, Other)
  Sender: FDA-Public Use
  Company Number: KR-INTERNATIONAL MEDICATION SYSTEMS, LIMITED-2026899

PATIENT
  Age: 34 Year
  Sex: Female

DRUGS (5)
  1. MIDAZOLAM [Concomitant]
     Active Substance: MIDAZOLAM HYDROCHLORIDE
  2. SODIUM CHLORIDE 10% [Suspect]
     Active Substance: SODIUM CHLORIDE
  3. LIDOCAINE 1 % [Suspect]
     Active Substance: LIDOCAINE
  4. HYALURONIDASE [Suspect]
     Active Substance: HYALURONIDASE
  5. TRIAMCINOLONE ACETONIDE. [Suspect]
     Active Substance: TRIAMCINOLONE ACETONIDE

REACTIONS (2)
  - Drug administered at inappropriate site [Recovered/Resolved]
  - Stress cardiomyopathy [Recovered/Resolved]
